FAERS Safety Report 5725507-6 (Version None)
Quarter: 2008Q2

REPORT INFORMATION
  Report Type: 
  Country: None (occurrence: None)
  Receive Date: 20080501
  Receipt Date: 20080425
  Transmission Date: 20081010
  Serious: No
  Sender: FDA-Public Use
  Company Number: JP-JNJFOC-20080203927

PATIENT
  Sex: Male
  Weight: 56 kg

DRUGS (2)
  1. RISPERDAL [Suspect]
     Indication: SCHIZOPHRENIA, RESIDUAL TYPE
     Route: 048
  2. ROHYPNOL [Concomitant]
     Route: 048

REACTIONS (1)
  - HYPONATRAEMIA [None]
